FAERS Safety Report 19675996 (Version 1)
Quarter: 2021Q3

REPORT INFORMATION
  Report Type: Spontaneous
  Country: US (occurrence: US)
  Receive Date: 20210809
  Receipt Date: 20210809
  Transmission Date: 20211014
  Serious: No
  Sender: FDA-Public Use
  Company Number: US-ASTRAZENECA-2021A623467

PATIENT

DRUGS (2)
  1. BYETTA [Suspect]
     Active Substance: EXENATIDE
     Indication: DIABETES MELLITUS
     Dosage: 2.4 UNKNOWN UNKNOWN
     Route: 058
  2. SILVADINE [Concomitant]
     Dosage: APPLYING ABOUT 1/16 OF AN INCH TWICE DAILY

REACTIONS (1)
  - Blister [Recovering/Resolving]
